FAERS Safety Report 4589287-2 (Version None)
Quarter: 2005Q1

REPORT INFORMATION
  Report Type: 
  Country: None (occurrence: None)
  Receive Date: 20050216
  Receipt Date: 20041119
  Transmission Date: 20050727
  Serious: Yes (Other)
  Sender: FDA-Public Use
  Company Number: 2005009547

PATIENT
  Sex: Female

DRUGS (1)
  1. BEXTRA [Suspect]
     Indication: MYALGIA

REACTIONS (5)
  - ASTHENIA [None]
  - BREAST CANCER [None]
  - CARDIAC DISORDER [None]
  - FATIGUE [None]
  - MYOCARDIAL INFARCTION [None]
